FAERS Safety Report 17823508 (Version 1)
Quarter: 2020Q2

REPORT INFORMATION
  Report Type: Other
  Country: DE (occurrence: DE)
  Receive Date: 20200526
  Receipt Date: 20200526
  Transmission Date: 20200714
  Serious: No
  Sender: FDA-Public Use
  Company Number: DE-LUPIN PHARMACEUTICALS INC.-2020-01902

PATIENT
  Age: 63 Year
  Sex: Female
  Weight: 60 kg

DRUGS (5)
  1. SIMVASTATIN. [Suspect]
     Active Substance: SIMVASTATIN
     Indication: PRODUCT USED FOR UNKNOWN INDICATION
     Dosage: 20 MILLIGRAM, UNK
     Route: 048
     Dates: start: 2015, end: 2016
  2. FLUVASTATIN [Suspect]
     Active Substance: FLUVASTATIN SODIUM
     Indication: PRODUCT USED FOR UNKNOWN INDICATION
     Dosage: 40 MILLIGRAM, UNK
     Route: 048
     Dates: start: 2017, end: 2018
  3. EZETROL [Suspect]
     Active Substance: EZETIMIBE
     Indication: PRODUCT USED FOR UNKNOWN INDICATION
     Dosage: 10 MILLIGRAM, UNK
     Route: 048
     Dates: start: 2018
  4. ROSUVASTATIN. [Suspect]
     Active Substance: ROSUVASTATIN
     Indication: PRODUCT USED FOR UNKNOWN INDICATION
     Dosage: 5 MILLIGRAM, UNK
     Route: 048
     Dates: start: 2019
  5. ATORVASTATIN CALCIUM. [Suspect]
     Active Substance: ATORVASTATIN CALCIUM
     Indication: PRODUCT USED FOR UNKNOWN INDICATION
     Dosage: 20 MILLIGRAM, UNK
     Route: 048
     Dates: start: 2018

REACTIONS (4)
  - Headache [Recovered/Resolved]
  - Arthralgia [Recovered/Resolved]
  - Fibromyalgia [Recovered/Resolved]
  - Myalgia [Recovered/Resolved]
